FAERS Safety Report 16937133 (Version 3)
Quarter: 2022Q3

REPORT INFORMATION
  Report Type: Report from Study
  Country: DE (occurrence: DE)
  Receive Date: 20191018
  Receipt Date: 20220824
  Transmission Date: 20221027
  Serious: Yes (Death, Hospitalization, Other)
  Sender: FDA-Public Use
  Company Number: DE-BAXTER-2019BAX020695

PATIENT
  Age: 72 Year
  Sex: Male
  Weight: 70 kg

DRUGS (13)
  1. DOXORUBICIN [Suspect]
     Active Substance: DOXORUBICIN
     Indication: Diffuse large B-cell lymphoma
     Dosage: DAILY DOSE: 90 MG MILLGRAM(S) EVERY 2 WEEKS
     Route: 042
     Dates: start: 20150324, end: 20150611
  2. CYCLOPHOSPHAMIDE [Suspect]
     Active Substance: CYCLOPHOSPHAMIDE
     Indication: Diffuse large B-cell lymphoma
     Dosage: DAILY DOSE: 1370 MG MILLGRAM(S) EVERY 2 WEEKS
     Route: 042
     Dates: start: 20150324, end: 20150611
  3. MABTHERA [Suspect]
     Active Substance: RITUXIMAB
     Indication: Diffuse large B-cell lymphoma
     Dosage: 1400 MILLIGRAM,EVERY 2 WK
     Route: 058
     Dates: start: 20150408
  4. MABTHERA [Suspect]
     Active Substance: RITUXIMAB
     Dosage: 1400 MILLIGRAM,EVERY 3 WK
     Route: 058
     Dates: start: 20150319, end: 20150611
  5. VINCRISTINE [Suspect]
     Active Substance: VINCRISTINE
     Indication: Diffuse large B-cell lymphoma
     Dosage: 1 MILLIGRAM,PRN
     Route: 040
     Dates: start: 20150319, end: 20150611
  6. HYALURONIDASE (HUMAN RECOMBINANT)\RITUXIMAB [Suspect]
     Active Substance: HYALURONIDASE (HUMAN RECOMBINANT)\RITUXIMAB
     Indication: Diffuse large B-cell lymphoma
     Dosage: 1400 MG, EVERY 3 WEEK
     Route: 065
     Dates: start: 20150319, end: 20150611
  7. HYALURONIDASE (HUMAN RECOMBINANT)\RITUXIMAB [Suspect]
     Active Substance: HYALURONIDASE (HUMAN RECOMBINANT)\RITUXIMAB
     Dosage: DAILY DOSE: 1400 MG MILLGRAM(S) EVERY 2 WEEKS
     Route: 065
     Dates: start: 20150408
  8. HYALURONIDASE (HUMAN RECOMBINANT)\RITUXIMAB [Suspect]
     Active Substance: HYALURONIDASE (HUMAN RECOMBINANT)\RITUXIMAB
     Dosage: DAILY DOSE: 1400 MG MILLGRAM(S) EVERY 2 WEEKS
     Route: 065
     Dates: start: 20150323, end: 20150611
  9. GRANISETRON [Concomitant]
     Active Substance: GRANISETRON
     Indication: Nausea
     Dosage: DAILY DOSE: 1 MG MILLGRAM(S) EVERY 2 WEEKS
     Route: 042
     Dates: start: 20150319, end: 20150611
  10. NEULASTA [Concomitant]
     Active Substance: PEGFILGRASTIM
     Indication: Prophylaxis
     Dosage: DAILY DOSE: 6 MG MILLGRAM(S) EVERY 2 WEEKS
     Route: 058
     Dates: start: 20150324
  11. MESNA [Concomitant]
     Active Substance: MESNA
     Indication: Product used for unknown indication
     Dosage: DAILY DOSE: 1800 MG MILLGRAM(S) EVERY 2 WEEKS
     Route: 048
     Dates: start: 20150324, end: 20150611
  12. PREDNISOLONE [Concomitant]
     Active Substance: PREDNISOLONE
     Indication: Nausea
     Dosage: 100 MG, DAY 1-5
     Route: 048
     Dates: start: 20150319, end: 20150611
  13. VINCRISTINE [Suspect]
     Active Substance: VINCRISTINE
     Indication: Diffuse large B-cell lymphoma
     Dosage: 1 MG
     Route: 065
     Dates: start: 20150319, end: 20150611

REACTIONS (8)
  - Pulmonary toxicity [Fatal]
  - General physical health deterioration [Fatal]
  - Pneumonia [Fatal]
  - Leukopenia [Fatal]
  - Sepsis [Fatal]
  - Anaemia [Fatal]
  - Off label use [Unknown]
  - Product use in unapproved indication [Unknown]

NARRATIVE: CASE EVENT DATE: 20150324
